FAERS Safety Report 4351385-6 (Version None)
Quarter: 2004Q2

REPORT INFORMATION
  Report Type: 
  Country: None (occurrence: None)
  Receive Date: 20040430
  Receipt Date: 20040430
  Transmission Date: 20050107
  Serious: Yes (Life-Threatening, Hospitalization)
  Sender: FDA-Public Use
  Company Number: None

PATIENT
  Age: 85 Year
  Sex: Female
  Weight: 55 kg

DRUGS (15)
  1. COUMADIN [Suspect]
     Indication: ATRIAL FIBRILLATION
     Dosage: 5 MG PO QHS
     Route: 048
  2. COUMADIN [Suspect]
     Indication: TRANSIENT ISCHAEMIC ATTACK
     Dosage: 5 MG PO QHS
     Route: 048
  3. ARICEPT [Concomitant]
  4. SYNTHROID [Concomitant]
  5. ALBUTEROL [Concomitant]
  6. LOPRESSOR [Concomitant]
  7. DIGOXIN [Concomitant]
  8. ATIVAN [Concomitant]
  9. TRICOR [Concomitant]
  10. DEMADEX [Concomitant]
  11. K-DUR 10 [Concomitant]
  12. CAPTOTEN [Concomitant]
  13. APAP TAB [Concomitant]
  14. EN  SEE IMAGE [Concomitant]
  15. DULCOLAX [Concomitant]

REACTIONS (7)
  - COAGULOPATHY [None]
  - COMA [None]
  - DRUG TOXICITY [None]
  - GASTROINTESTINAL HAEMORRHAGE [None]
  - HAEMATOMA [None]
  - HYPOVOLAEMIC SHOCK [None]
  - RENAL FAILURE ACUTE [None]
